FAERS Safety Report 6193780-9 (Version None)
Quarter: 2009Q2

REPORT INFORMATION
  Report Type: 
  Country: None (occurrence: None)
  Receive Date: 20090511
  Receipt Date: 20090506
  Transmission Date: 20091009
  Serious: Yes (Other)
  Sender: FDA-Public Use
  Company Number: 2009020056

PATIENT
  Sex: Male
  Weight: 41.3 kg

DRUGS (9)
  1. VIVAGLOBIN [Suspect]
     Indication: IMMUNODEFICIENCY COMMON VARIABLE
     Dosage: SEE IMAGE
     Route: 058
     Dates: start: 20090211, end: 20090401
  2. VIVAGLOBIN [Suspect]
     Indication: IMMUNODEFICIENCY COMMON VARIABLE
     Dosage: SEE IMAGE
     Route: 058
     Dates: start: 20090213, end: 20090401
  3. VIVAGLOBIN [Suspect]
  4. DIPHENHYDRAMINE HCL [Concomitant]
  5. LIDOCAINE/PRILOCAINE (EMLA /00675501/) [Concomitant]
  6. EPIPEN [Concomitant]
  7. ISONIAZID [Concomitant]
  8. VALTREX [Concomitant]
  9. MULTIVITAMIN (DAILY MULTIVITAMIN) [Concomitant]

REACTIONS (2)
  - LOSS OF CONSCIOUSNESS [None]
  - MYOCARDIAL INFARCTION [None]
